FAERS Safety Report 5277271-5 (Version None)
Quarter: 2007Q1

REPORT INFORMATION
  Report Type: 
  Country: None (occurrence: None)
  Receive Date: 20070323
  Receipt Date: 20070323
  Transmission Date: 20070707
  Serious: No
  Sender: FDA-Public Use
  Company Number: None

PATIENT
  Age: 87 Year
  Sex: Male
  Weight: 81.1939 kg

DRUGS (2)
  1. LOVENOX [Suspect]
     Indication: DEEP VEIN THROMBOSIS
     Dosage: 80 MG EVERY 12 HOURS SUB-Q
     Route: 058
     Dates: start: 20070319, end: 20070321
  2. COUMADIN [Concomitant]

REACTIONS (1)
  - BLOOD BLISTER [None]
